FAERS Safety Report 6577583-9 (Version None)
Quarter: 2010Q1

REPORT INFORMATION
  Report Type: 
  Country: None (occurrence: None)
  Receive Date: 20100211
  Receipt Date: 20100111
  Transmission Date: 20100710
  Serious: No
  Sender: FDA-Public Use
  Company Number: US-BAYER-201010710BCC

PATIENT
  Sex: Female

DRUGS (1)
  1. ALEVE [Suspect]
     Indication: JOINT SWELLING
     Route: 048

REACTIONS (2)
  - FLUID RETENTION [None]
  - MUSCULOSKELETAL DISCOMFORT [None]
